FAERS Safety Report 9068796 (Version 4)
Quarter: 2019Q3

REPORT INFORMATION
  Report Type: Spontaneous
  Country: US (occurrence: US)
  Receive Date: 20130215
  Receipt Date: 20190916
  Transmission Date: 20191005
  Serious: Yes (Death, Other)
  Sender: FDA-Public Use
  Company Number: US-CELGENEUS-163-21660-13021163

PATIENT

DRUGS (6)
  1. ABRAXANE [Suspect]
     Active Substance: PACLITAXEL
     Indication: SQUAMOUS CELL CARCINOMA OF HEAD AND NECK
     Dosage: 100 MILLIGRAM/SQ. METER
     Route: 041
  2. CETUXIMAB. [Suspect]
     Active Substance: CETUXIMAB
     Indication: SQUAMOUS CELL CARCINOMA OF HEAD AND NECK
     Dosage: 400 MILLIGRAM/SQ. METER
     Route: 065
  3. 5-FLUOROURACIL [Suspect]
     Active Substance: FLUOROURACIL
     Indication: SQUAMOUS CELL CARCINOMA OF HEAD AND NECK
     Dosage: 750 MILLIGRAM/SQ. METER
     Route: 041
  4. CETUXIMAB. [Suspect]
     Active Substance: CETUXIMAB
     Dosage: 250 MILLIGRAM/SQ. METER
     Route: 065
  5. CISPLATIN. [Suspect]
     Active Substance: CISPLATIN
     Indication: SQUAMOUS CELL CARCINOMA OF HEAD AND NECK
     Dosage: 75 MILLIGRAM/SQ. METER
     Route: 065
  6. CISPLATIN. [Suspect]
     Active Substance: CISPLATIN
     Dosage: 100 MILLIGRAM/SQ. METER
     Route: 065

REACTIONS (26)
  - Squamous cell carcinoma of head and neck [Fatal]
  - Weight decreased [Unknown]
  - Tinnitus [Unknown]
  - Diarrhoea [Unknown]
  - Fatigue [Unknown]
  - Mucosal inflammation [Unknown]
  - Neuropathy peripheral [Unknown]
  - Febrile neutropenia [Unknown]
  - Alanine aminotransferase increased [Unknown]
  - Colitis [Unknown]
  - Dermatitis acneiform [Unknown]
  - Thrombosis [Unknown]
  - Thrombocytopenia [Unknown]
  - Rash [Unknown]
  - Pneumonia [Fatal]
  - Infusion site reaction [Unknown]
  - Oedema peripheral [Unknown]
  - Chronic hepatitis C [Fatal]
  - Hypokalaemia [Unknown]
  - Aspartate aminotransferase increased [Unknown]
  - Hypersensitivity [Unknown]
  - Bacterial sepsis [Fatal]
  - Anaemia [Unknown]
  - Neutropenia [Unknown]
  - Blood creatinine increased [Unknown]
  - Squamous cell carcinoma of head and neck [Unknown]
